FAERS Safety Report 25412329 (Version 1)
Quarter: 2025Q2

REPORT INFORMATION
  Report Type: Spontaneous
  Country: CN (occurrence: CN)
  Receive Date: 20250609
  Receipt Date: 20250609
  Transmission Date: 20250716
  Serious: Yes (Life-Threatening, Hospitalization, Other)
  Sender: BAYER HEALTHCARE PHARMACEUTICALS INC.
  Company Number: CN-BAYER-2025A076335

PATIENT
  Age: 36 Year
  Sex: Female
  Weight: 82 kg

DRUGS (2)
  1. ULTRAVIST [Suspect]
     Active Substance: IOPROMIDE
     Indication: Imaging procedure
     Route: 042
     Dates: start: 20250528, end: 20250528
  2. ULTRAVIST [Suspect]
     Active Substance: IOPROMIDE
     Indication: Arteriosclerosis coronary artery

REACTIONS (14)
  - Anaphylactic shock [Not Recovered/Not Resolved]
  - Cardiac arrest [Not Recovered/Not Resolved]
  - Respiratory arrest [Not Recovered/Not Resolved]
  - Seizure [Not Recovered/Not Resolved]
  - Loss of consciousness [Not Recovered/Not Resolved]
  - Hepatic function abnormal [None]
  - Hypotension [Not Recovered/Not Resolved]
  - Haemoglobin decreased [None]
  - Red blood cell count decreased [None]
  - White blood cell count increased [None]
  - Eosinophil percentage decreased [None]
  - Lymphocyte percentage decreased [None]
  - Monocyte percentage decreased [None]
  - Haematocrit decreased [None]

NARRATIVE: CASE EVENT DATE: 20250528
